FAERS Safety Report 25447542 (Version 1)
Quarter: 2025Q2

REPORT INFORMATION
  Report Type: Spontaneous
  Country: AU (occurrence: AU)
  Receive Date: 20250617
  Receipt Date: 20250617
  Transmission Date: 20250717
  Serious: Yes (Hospitalization, Other)
  Sender: CIPLA
  Company Number: AU-CIPLA LTD.-2025AU07368

PATIENT

DRUGS (11)
  1. LENALIDOMIDE [Suspect]
     Active Substance: LENALIDOMIDE
     Indication: Follicular lymphoma
     Dosage: 20 MILLIGRAM, QD
     Route: 048
     Dates: start: 20250403
  2. EPCORITAMAB [Suspect]
     Active Substance: EPCORITAMAB
     Indication: Follicular lymphoma
     Route: 058
     Dates: start: 20250403, end: 20250403
  3. EPCORITAMAB [Suspect]
     Active Substance: EPCORITAMAB
     Route: 058
     Dates: start: 20250410, end: 20250410
  4. RITUXIMAB [Suspect]
     Active Substance: RITUXIMAB
     Indication: Follicular lymphoma
     Dosage: 750 MILLIGRAM, QWK
     Route: 042
     Dates: start: 20250403
  5. ASPIRIN [Concomitant]
     Active Substance: ASPIRIN
     Indication: Thrombosis prophylaxis
     Dosage: 100 MILLIGRAM, QD
     Route: 065
     Dates: start: 20250403
  6. ALLOPURINOL [Concomitant]
     Active Substance: ALLOPURINOL
     Indication: Prophylaxis
     Dosage: 300 MILLIGRAM, QD
     Route: 065
     Dates: start: 20250403
  7. DEXAMETHASONE [Concomitant]
     Active Substance: DEXAMETHASONE
     Indication: Prophylaxis
     Dosage: 16 MILLIGRAM, QOD
     Route: 065
     Dates: start: 20250403, end: 20250406
  8. LORATADINE [Concomitant]
     Active Substance: LORATADINE
     Indication: Prophylaxis
     Dosage: 10 MILLIGRAM, QD
     Route: 065
     Dates: start: 20250403, end: 20250403
  9. METOCLOPRAMIDE [Concomitant]
     Active Substance: METOCLOPRAMIDE
     Indication: Vomiting
     Route: 065
  10. METOCLOPRAMIDE [Concomitant]
     Active Substance: METOCLOPRAMIDE
     Indication: Nausea
     Route: 065
     Dates: start: 20250403
  11. ACETAMINOPHEN [Concomitant]
     Active Substance: ACETAMINOPHEN
     Indication: Prophylaxis
     Dosage: 1000 MILLIGRAM, QD
     Route: 065
     Dates: start: 20250403, end: 20250403

REACTIONS (1)
  - Cytokine release syndrome [Recovered/Resolved]

NARRATIVE: CASE EVENT DATE: 20250416
